FAERS Safety Report 4908665-2 (Version None)
Quarter: 2006Q1

REPORT INFORMATION
  Report Type: 
  Country: None (occurrence: None)
  Receive Date: 20060210
  Receipt Date: 20051007
  Transmission Date: 20060701
  Serious: No
  Sender: FDA-Public Use
  Company Number: US-GLAXOSMITHKLINE-A0577514A

PATIENT
  Age: 34 Year
  Sex: Female

DRUGS (3)
  1. PAXIL CR [Suspect]
     Dosage: 12.5MG PER DAY
     Route: 048
  2. LEVOXYL [Concomitant]
  3. PAXIL [Concomitant]
     Dosage: 10MG PER DAY
     Route: 048

REACTIONS (2)
  - ABDOMINAL DISTENSION [None]
  - WEIGHT INCREASED [None]
